FAERS Safety Report 10046032 (Version 1)
Quarter: 2014Q1

REPORT INFORMATION
  Report Type: Spontaneous
  Country: RU (occurrence: RU)
  Receive Date: 20140331
  Receipt Date: 20140331
  Transmission Date: 20141002
  Serious: Yes (Hospitalization)
  Sender: FDA-Public Use
  Company Number: RU-009507513-1403RUS013076

PATIENT
  Sex: 0

DRUGS (1)
  1. EPTIFIBATIDE [Suspect]
     Indication: PERCUTANEOUS CORONARY INTERVENTION
     Route: 042

REACTIONS (2)
  - Catheter site haematoma [Unknown]
  - Haemorrhage [Unknown]
